FAERS Safety Report 6231982-3 (Version None)
Quarter: 2009Q2

REPORT INFORMATION
  Report Type: 
  Country: None (occurrence: None)
  Receive Date: 20090616
  Receipt Date: 20090604
  Transmission Date: 20091009
  Serious: Yes (Other)
  Sender: FDA-Public Use
  Company Number: JP-PFIZER INC-2009224893

PATIENT
  Age: 73 Year

DRUGS (1)
  1. XALATAN [Suspect]
     Route: 031

REACTIONS (2)
  - MACULAR OEDEMA [None]
  - RETINAL OEDEMA [None]
